FAERS Safety Report 21208246 (Version 1)
Quarter: 2022Q3

REPORT INFORMATION
  Report Type: Spontaneous
  Country: FR (occurrence: FR)
  Receive Date: 20220812
  Receipt Date: 20220812
  Transmission Date: 20221026
  Serious: Yes (Life-Threatening, Other)
  Sender: FDA-Public Use
  Company Number: FR-BAXTER-2022BAX017032

PATIENT
  Age: 59 Year
  Sex: Male
  Weight: 83 kg

DRUGS (4)
  1. DOXORUBICIN [Suspect]
     Active Substance: DOXORUBICIN
     Indication: T-cell lymphoma
     Dosage: 50 MG/M2, 1X 2 WEEK, SOLUTION FOR INJECTION/INFUSION, COURSE OF TREATMENT OF 14 DAYS ON 04/05, 20/05
     Route: 042
     Dates: start: 20220504, end: 20220617
  2. CYCLOPHOSPHAMIDE [Suspect]
     Active Substance: CYCLOPHOSPHAMIDE
     Indication: T-cell lymphoma
     Dosage: 750 MG/M2, 1X 2 WEEK, COURSE OF TREATMENT OF 14 DAYS ON 04/05, 20/05, 30/06, AND 17/06
     Route: 042
     Dates: start: 20220504, end: 20220617
  3. ETOPOSIDE [Suspect]
     Active Substance: ETOPOSIDE
     Indication: T-cell lymphoma
     Dosage: 100 MG/M2, 1X 2 WEEK, COURSE OF TREATMENT OF 14 DAYS ON 04/05, 20/05, 30/06, AND 17/06
     Route: 042
     Dates: start: 20220504, end: 20220617
  4. VINCRISTINE SULFATE [Suspect]
     Active Substance: VINCRISTINE SULFATE
     Indication: T-cell lymphoma
     Dosage: 1.4 MG/M2, 1X 2 WEEK, COURSE OF TREATMENT OF 14 DAYS ON 04/05, 20/05, 30/06, AND 17/06
     Route: 042
     Dates: start: 20220504, end: 20220617

REACTIONS (1)
  - Haemophagocytic lymphohistiocytosis [Unknown]

NARRATIVE: CASE EVENT DATE: 20220101
